FAERS Safety Report 19228571 (Version 1)
Quarter: 2021Q2

REPORT INFORMATION
  Report Type: Spontaneous
  Country: US (occurrence: US)
  Receive Date: 20210507
  Receipt Date: 20210507
  Transmission Date: 20210717
  Serious: Yes (Hospitalization, Other)
  Sender: FDA-Public Use
  Company Number: US-EPICPHARMA-US-2021EPCLIT00484

PATIENT
  Age: 12 Year
  Sex: Female

DRUGS (8)
  1. CEFTRIAXONE. [Interacting]
     Active Substance: CEFTRIAXONE
     Indication: SUPPORTIVE CARE
     Route: 065
  2. INSULIN [Interacting]
     Active Substance: INSULIN NOS
     Indication: HYPERGLYCAEMIA
     Route: 065
  3. EPINEPHRINE. [Interacting]
     Active Substance: EPINEPHRINE
     Indication: SUPPORTIVE CARE
     Route: 065
  4. NOREPINEPHRINE. [Interacting]
     Active Substance: NOREPINEPHRINE
     Indication: SUPPORTIVE CARE
     Route: 065
  5. VANCOMYCIN [Interacting]
     Active Substance: VANCOMYCIN
     Indication: SUPPORTIVE CARE
     Route: 065
  6. VASOPRESSIN. [Interacting]
     Active Substance: VASOPRESSIN
     Indication: SUPPORTIVE CARE
     Route: 065
  7. AMLODIPINE BESYLATE. [Suspect]
     Active Substance: AMLODIPINE BESYLATE
     Indication: PRODUCT USED FOR UNKNOWN INDICATION
     Route: 065
  8. DOPAMINE [Interacting]
     Active Substance: DOPAMINE HYDROCHLORIDE
     Indication: SUPPORTIVE CARE
     Route: 065

REACTIONS (13)
  - Abdominal pain [Recovered/Resolved]
  - Nausea [Recovered/Resolved]
  - Intentional overdose [Unknown]
  - Hyperglycaemia [Recovered/Resolved]
  - Suicide attempt [Unknown]
  - Tachycardia [Recovered/Resolved]
  - Abdominal tenderness [Recovered/Resolved]
  - Acute kidney injury [Recovered/Resolved]
  - Syncope [Recovered/Resolved]
  - Hypotension [Recovered/Resolved]
  - Shock [Recovered/Resolved]
  - Acidosis [Recovered/Resolved]
  - Arthralgia [Recovered/Resolved]
